FAERS Safety Report 5248671-4 (Version None)
Quarter: 2007Q1

REPORT INFORMATION
  Report Type: 
  Country: None (occurrence: None)
  Receive Date: 20070227
  Receipt Date: 20070227
  Transmission Date: 20070707
  Serious: Yes (Other)
  Sender: FDA-Public Use
  Company Number: None

PATIENT
  Age: 77 Year
  Sex: Male
  Weight: 88.5 kg

DRUGS (14)
  1. FELODIPINE [Suspect]
  2. DOCUSATE NA [Concomitant]
  3. MULTI-VITAMIN [Concomitant]
  4. SIMVASTATIN [Concomitant]
  5. VARDENAFIL HCL [Concomitant]
  6. LISINOPRIL [Concomitant]
  7. METOPROLOL TARTRATE [Concomitant]
  8. LORATADINE [Concomitant]
  9. ASPIRIN [Concomitant]
  10. GLYBURIDE [Concomitant]
  11. PNEUMOCOCCAL VACCINE-23 [Concomitant]
  12. HEMORRHOIDAL/HC 1% RTL OINT [Concomitant]
  13. ETODOLAC [Concomitant]
  14. FUROSEMIDE [Concomitant]

REACTIONS (1)
  - OEDEMA [None]
